FAERS Safety Report 5712827-4 (Version None)
Quarter: 2008Q2

REPORT INFORMATION
  Report Type: 
  Country: None (occurrence: None)
  Receive Date: 20080422
  Receipt Date: 20080414
  Transmission Date: 20081010
  Serious: Yes (Hospitalization, Other)
  Sender: FDA-Public Use
  Company Number: A0701784A

PATIENT
  Age: 38 Year
  Sex: Female
  Weight: 76.6 kg

DRUGS (1)
  1. LAPATINIB [Suspect]
     Indication: CERVIX CARCINOMA
     Dosage: 1500MG PER DAY
     Route: 048
     Dates: start: 20071221

REACTIONS (7)
  - DEATH [None]
  - DYSPNOEA [None]
  - FAILURE TO THRIVE [None]
  - HYPERCALCAEMIA [None]
  - METASTASES TO LUNG [None]
  - ORAL INTAKE REDUCED [None]
  - PO2 DECREASED [None]
